FAERS Safety Report 22150171 (Version 2)
Quarter: 2023Q2

REPORT INFORMATION
  Report Type: Spontaneous
  Country: US (occurrence: None)
  Receive Date: 20230329
  Receipt Date: 20230511
  Transmission Date: 20230722
  Serious: No
  Sender: FDA-Public Use
  Company Number: 2023A061130

PATIENT
  Sex: Female

DRUGS (1)
  1. BREZTRI [Suspect]
     Active Substance: BUDESONIDE\FORMOTEROL\GLYCOPYRROLATE
     Indication: Product used for unknown indication
     Dosage: 2 PUFFS TWICE DAILY
     Route: 055
     Dates: start: 20211206

REACTIONS (5)
  - Blood pressure abnormal [Unknown]
  - Diabetes mellitus [Unknown]
  - Device use issue [Unknown]
  - Product dose omission issue [Unknown]
  - Device delivery system issue [Not Recovered/Not Resolved]
